FAERS Safety Report 9829175 (Version 2)
Quarter: 2014Q3

REPORT INFORMATION
  Report Type: Spontaneous
  Country: US (occurrence: US)
  Receive Date: 20140119
  Receipt Date: 20140702
  Transmission Date: 20150326
  Serious: Yes (Hospitalization, Other)
  Sender: FDA-Public Use
  Company Number: US-009507513-1401USA004983

PATIENT
  Sex: Female
  Weight: 65.31 kg

DRUGS (1)
  1. NUVARING [Suspect]
     Active Substance: ETHINYL ESTRADIOL\ETONOGESTREL
     Indication: PRODUCT USED FOR UNKNOWN INDICATION
     Dosage: UNK
     Route: 067
     Dates: start: 20081218

REACTIONS (12)
  - Fatigue [Unknown]
  - Fall [Unknown]
  - Adverse drug reaction [Unknown]
  - Jugular vein thrombosis [Unknown]
  - Generalised tonic-clonic seizure [Recovered/Resolved]
  - Subarachnoid haemorrhage [Recovering/Resolving]
  - Laceration [Unknown]
  - Embolism arterial [Unknown]
  - Sinus polyp [Unknown]
  - Cyst [Not Recovered/Not Resolved]
  - Intracranial venous sinus thrombosis [Unknown]
  - Arteriosclerosis [Unknown]

NARRATIVE: CASE EVENT DATE: 201008
